FAERS Safety Report 7920136-8 (Version None)
Quarter: 2011Q4

REPORT INFORMATION
  Report Type: 
  Country: None (occurrence: None)
  Receive Date: 20111117
  Receipt Date: 20111108
  Transmission Date: 20120403
  Serious: Yes (Other)
  Sender: FDA-Public Use
  Company Number: CA-JNJFOC-20111104579

PATIENT
  Sex: Female
  Weight: 102 kg

DRUGS (2)
  1. CELEBREX [Concomitant]
  2. REMICADE [Suspect]
     Indication: ANKYLOSING SPONDYLITIS
     Dosage: TOTAL OF 45 INFUSIONS
     Route: 042
     Dates: start: 20051107

REACTIONS (1)
  - TRIGEMINAL NERVE DISORDER [None]
